FAERS Safety Report 8193189 (Version 2)
Quarter: 2013Q3

REPORT INFORMATION
  Report Type: Spontaneous
  Country: FR (occurrence: FR)
  Receive Date: 20111021
  Receipt Date: 20130926
  Transmission Date: 20140515
  Serious: Yes (Hospitalization)
  Sender: FDA-Public Use
  Company Number: FR-JNJFOC-20111007241

PATIENT
  Age: 43 Year
  Sex: Female

DRUGS (10)
  1. HALDOL [Suspect]
     Indication: PRODUCT USED FOR UNKNOWN INDICATION
     Route: 048
  2. CONTRAMAL [Suspect]
     Indication: TOOTHACHE
     Dosage: TWICE DAILY
     Route: 048
     Dates: start: 20110907, end: 20110910
  3. SEROPLEX [Suspect]
     Indication: ALCOHOLISM
     Route: 048
     Dates: start: 20110713, end: 20110910
  4. SEROPLEX [Suspect]
     Indication: DEPRESSION
     Route: 048
     Dates: start: 20110713, end: 20110910
  5. ZYPREXA [Suspect]
     Indication: PRODUCT USED FOR UNKNOWN INDICATION
     Route: 048
     Dates: start: 2010
  6. SERESTA [Concomitant]
     Route: 065
  7. VITAMIN B1 [Concomitant]
     Route: 065
  8. VITAMIN B6 [Concomitant]
     Route: 065
  9. NICOBION [Concomitant]
     Route: 065
  10. IMOVANE [Concomitant]
     Route: 065

REACTIONS (4)
  - Alcoholism [Recovered/Resolved]
  - Grand mal convulsion [Recovered/Resolved]
  - Hyponatraemia [Recovered/Resolved]
  - Loss of consciousness [Recovered/Resolved]
